FAERS Safety Report 5025731-4 (Version None)
Quarter: 2006Q2

REPORT INFORMATION
  Report Type: 
  Country: None (occurrence: None)
  Receive Date: 20060614
  Receipt Date: 20060307
  Transmission Date: 20061013
  Serious: Yes (Hospitalization, Other)
  Sender: FDA-Public Use
  Company Number: US-BRISTOL-MYERS SQUIBB COMPANY-13306055

PATIENT
  Age: 82 Year
  Sex: Female

DRUGS (2)
  1. COUMADIN [Suspect]
     Dosage: DOSE = 1/2 TABLET FOR 5 DAYS, 1 TABLET FOR 2 DAYS
  2. ASPIRIN [Concomitant]

REACTIONS (2)
  - CONVULSION [None]
  - WEIGHT DECREASED [None]
